FAERS Safety Report 10304462 (Version 2)
Quarter: 2014Q3

REPORT INFORMATION
  Report Type: Report from Study
  Country: JP (occurrence: JP)
  Receive Date: 20140715
  Receipt Date: 20140715
  Transmission Date: 20150326
  Serious: Yes (Other)
  Sender: FDA-Public Use
  Company Number: JP-ROCHE-1106100

PATIENT
  Age: 63 Year
  Sex: Male
  Weight: 65.5 kg

DRUGS (17)
  1. VINCRISTINE [Suspect]
     Active Substance: VINCRISTINE
     Indication: DIFFUSE LARGE B-CELL LYMPHOMA
     Dosage: DATE OF LAST DOSE (2 MG) PRIOR TO AE ONSET : 29/MAR/2012.
     Route: 040
     Dates: start: 20111026, end: 20120329
  2. ACETAMINOPHEN. [Concomitant]
     Active Substance: ACETAMINOPHEN
  3. FAMOTIDINE. [Concomitant]
     Active Substance: FAMOTIDINE
     Indication: GASTRITIS
     Route: 065
     Dates: start: 20111025, end: 20120718
  4. BAKTAR [Concomitant]
     Active Substance: SULFAMETHOXAZOLE\TRIMETHOPRIM
     Indication: INFECTION
     Route: 065
     Dates: start: 20111025, end: 20120718
  5. POVIDONE IODINE [Concomitant]
     Active Substance: POVIDONE-IODINE
     Indication: INFECTION
     Route: 065
     Dates: start: 20121212, end: 20130228
  6. CHLORPHENAMINE MALEATE [Concomitant]
     Active Substance: CHLORPHENIRAMINE MALEATE
  7. DOXORUBICIN [Suspect]
     Active Substance: DOXORUBICIN
     Indication: DIFFUSE LARGE B-CELL LYMPHOMA
     Dosage: DATE OF LAST DOSE (88 MG) PRIOR TO AE ONSET : 29/MAR/2012.
     Route: 042
     Dates: start: 20111026, end: 20120329
  8. ALCLOMETASONE DIPROPIONATE. [Concomitant]
     Active Substance: ALCLOMETASONE DIPROPIONATE
     Route: 065
     Dates: start: 20120217
  9. HEPARINOID [Concomitant]
     Active Substance: CHONDROITIN SULFATE (BOVINE)
     Indication: DERMATITIS
     Route: 065
     Dates: start: 20120217
  10. SENNOSIDE [Concomitant]
     Active Substance: SENNOSIDES
     Route: 065
     Dates: start: 20120322
  11. LENOGRASTIM [Concomitant]
     Active Substance: LENOGRASTIM
  12. PREDNISOLONE. [Suspect]
     Active Substance: PREDNISOLONE
     Indication: DIFFUSE LARGE B-CELL LYMPHOMA
     Dosage: DATE OF LAST DOSE (100 MG) PRIOR TO AE ONSET : 01/APR/2012.
     Route: 048
     Dates: start: 20111025, end: 20120401
  13. ALLOPURINOL. [Concomitant]
     Active Substance: ALLOPURINOL
  14. OBINUTUZUMAB [Suspect]
     Active Substance: OBINUTUZUMAB
     Indication: DIFFUSE LARGE B-CELL LYMPHOMA
     Dosage: DATE OF LAST DOSE (VOLUME : 250 ML AND DOSE CONCENTRATION : 4 MG/ML) PRIOR TO AE ONSET : 28/MAR/2012
     Route: 042
     Dates: start: 20111025, end: 20120328
  15. CYCLOPHOSPHAMIDE. [Suspect]
     Active Substance: CYCLOPHOSPHAMIDE
     Indication: DIFFUSE LARGE B-CELL LYMPHOMA
     Dosage: DATE OF LAST DOSE (1320 MG) PRIOR TO AE ONSET : 29/MAR/2012.
     Route: 042
     Dates: start: 20111026, end: 20120329
  16. SENNOSIDE [Concomitant]
     Active Substance: SENNOSIDES
     Indication: CONSTIPATION
     Route: 065
     Dates: start: 20111027
  17. DIFLORASONE DIACETATE. [Concomitant]
     Active Substance: DIFLORASONE DIACETATE
     Route: 065
     Dates: start: 20120217

REACTIONS (1)
  - Cardiac failure [Not Recovered/Not Resolved]

NARRATIVE: CASE EVENT DATE: 20120817
